FAERS Safety Report 21700166 (Version 1)
Quarter: 2022Q4

REPORT INFORMATION
  Report Type: Report from Study
  Country: DE (occurrence: DE)
  Receive Date: 20221208
  Receipt Date: 20221208
  Transmission Date: 20230112
  Serious: Yes (Hospitalization, Other)
  Sender: FDA-Public Use
  Company Number: DE-ABBVIE-4228477

PATIENT
  Sex: Male
  Weight: 85 kg

DRUGS (5)
  1. SKYRIZI [Suspect]
     Active Substance: RISANKIZUMAB-RZAA
     Indication: Psoriasis
     Route: 058
     Dates: start: 20210705
  2. Vitamin B1+B6 [Concomitant]
     Indication: Hypovitaminosis
     Dosage: 100/100 MG
     Route: 048
     Dates: start: 20220106
  3. Hydromorphon retard [Concomitant]
     Indication: Product used for unknown indication
     Route: 048
     Dates: start: 20220106
  4. VITAMIN B12 [Concomitant]
     Active Substance: CYANOCOBALAMIN
     Indication: Hypovitaminosis
     Route: 048
     Dates: start: 20220106
  5. METAMIZOLE [Concomitant]
     Active Substance: METAMIZOLE
     Indication: Product used for unknown indication
     Route: 048
     Dates: start: 20220106

REACTIONS (11)
  - Secondary cerebellar degeneration [Recovered/Resolved with Sequelae]
  - General physical health deterioration [Unknown]
  - Vitamin D deficiency [Unknown]
  - Gait disturbance [Unknown]
  - Tobacco abuse [Unknown]
  - Rib fracture [Unknown]
  - Polyneuropathy [Recovered/Resolved with Sequelae]
  - Bone marrow disorder [Unknown]
  - Folate deficiency [Unknown]
  - Contusion [Recovered/Resolved with Sequelae]
  - Fall [Unknown]

NARRATIVE: CASE EVENT DATE: 20210901
